FAERS Safety Report 4890799-2 (Version None)
Quarter: 2006Q1

REPORT INFORMATION
  Report Type: 
  Country: None (occurrence: None)
  Receive Date: 20060123
  Receipt Date: 20060111
  Transmission Date: 20060701
  Serious: Yes (Other)
  Sender: FDA-Public Use
  Company Number: 2006007913

PATIENT
  Age: 76 Year
  Sex: Female
  Weight: 81.6475 kg

DRUGS (1)
  1. XALATAN [Suspect]
     Indication: GLAUCOMA
     Dosage: 3 MCG (1.5 MCG, EVERY DAY), OPTHALMIC
     Route: 047
     Dates: start: 20020101

REACTIONS (6)
  - ASTIGMATISM [None]
  - BRONCHITIS [None]
  - CATARACT [None]
  - CONDITION AGGRAVATED [None]
  - NASOPHARYNGITIS [None]
  - PULMONARY CONGESTION [None]
